FAERS Safety Report 4860170-8 (Version None)
Quarter: 2005Q4

REPORT INFORMATION
  Report Type: 
  Country: None (occurrence: None)
  Receive Date: 20051219
  Receipt Date: 20051102
  Transmission Date: 20060501
  Serious: Yes (Other)
  Sender: FDA-Public Use
  Company Number: US-ROCHE-423564

PATIENT
  Age: 60 Year
  Sex: Female
  Weight: 68 kg

DRUGS (4)
  1. BONIVA [Suspect]
     Indication: OSTEOPOROSIS
     Route: 048
     Dates: start: 20051101, end: 20051102
  2. MACRODANTIN [Concomitant]
     Indication: PROPHYLAXIS
     Route: 048
  3. SYNTHROID [Concomitant]
     Indication: HYPOTHYROIDISM
     Route: 048
  4. DETROL [Concomitant]
     Dosage: DRUG NAME REPORTED AS DETROL LA.
     Route: 048

REACTIONS (7)
  - BONE PAIN [None]
  - HEADACHE [None]
  - HERPES ZOSTER [None]
  - LIP EXFOLIATION [None]
  - MULTIPLE SCLEROSIS [None]
  - MUSCLE SPASMS [None]
  - NAUSEA [None]
